FAERS Safety Report 5722935-X (Version None)
Quarter: 2008Q2

REPORT INFORMATION
  Report Type: 
  Country: None (occurrence: None)
  Receive Date: 20080430
  Receipt Date: 20080422
  Transmission Date: 20081010
  Serious: Yes (Other)
  Sender: FDA-Public Use
  Company Number: IT-RANBAXY-2008RR-14640

PATIENT

DRUGS (2)
  1. AMOXICILLINA E ACIDO CLAVULANICO RANBAXY 875MG+125MG COMPRESSE RIVESTI [Suspect]
     Indication: BRONCHITIS
     Route: 048
  2. FLUIMUCIL [Suspect]
     Indication: BRONCHITIS
     Dosage: 200 MG, UNK
     Route: 048

REACTIONS (1)
  - ANAPHYLACTIC SHOCK [None]
